FAERS Safety Report 22277793 (Version 5)
Quarter: 2024Q1

REPORT INFORMATION
  Report Type: Report from Study
  Country: US (occurrence: US)
  Receive Date: 20230503
  Receipt Date: 20240215
  Transmission Date: 20240410
  Serious: Yes (Other)
  Sender: FDA-Public Use
  Company Number: US-002147023-NVSC2023US097055

PATIENT
  Age: 56 Year
  Sex: Female

DRUGS (1)
  1. LEQVIO [Suspect]
     Active Substance: INCLISIRAN SODIUM
     Indication: Product used for unknown indication
     Dosage: UNK
     Route: 058

REACTIONS (10)
  - Hepatic enzyme increased [Not Recovered/Not Resolved]
  - Low density lipoprotein increased [Not Recovered/Not Resolved]
  - Musculoskeletal pain [Recovered/Resolved]
  - Palpitations [Recovered/Resolved]
  - Feeling abnormal [Unknown]
  - Back pain [Recovered/Resolved]
  - Headache [Recovered/Resolved]
  - Arthralgia [Unknown]
  - Diarrhoea [Recovered/Resolved]
  - Injection site pain [Recovered/Resolved]

NARRATIVE: CASE EVENT DATE: 20230426
